FAERS Safety Report 4750032-9 (Version None)
Quarter: 2005Q3

REPORT INFORMATION
  Report Type: 
  Country: None (occurrence: None)
  Receive Date: 20050822
  Receipt Date: 20050808
  Transmission Date: 20060218
  Serious: Yes (Other)
  Sender: FDA-Public Use
  Company Number: 200512527GDS

PATIENT

DRUGS (2)
  1. TRASYLOL [Suspect]
     Indication: POST PROCEDURAL HAEMORRHAGE
     Dosage: SEE IMAGE
     Route: 042
  2. CLOPIDOGREL [Concomitant]

REACTIONS (2)
  - ATRIAL FIBRILLATION [None]
  - CEREBROVASCULAR ACCIDENT [None]
